FAERS Safety Report 9632205 (Version 1)
Quarter: 2013Q4

REPORT INFORMATION
  Report Type: Spontaneous
  Country: US (occurrence: US)
  Receive Date: 20131018
  Receipt Date: 20131018
  Transmission Date: 20140711
  Serious: No
  Sender: FDA-Public Use
  Company Number: US-TEVA-438913USA

PATIENT
  Age: 78 Year
  Sex: 0

DRUGS (3)
  1. AZILECT [Suspect]
  2. SINEMET [Concomitant]
  3. UNSPECIFIED [Concomitant]
     Indication: HYPERTENSION

REACTIONS (1)
  - Orthostatic hypertension [Recovered/Resolved]
